FAERS Safety Report 8938053 (Version 1)
Quarter: 2012Q4

REPORT INFORMATION
  Report Type: 
  Country: US (occurrence: US)
  Receive Date: 20121203
  Receipt Date: 20121203
  Transmission Date: 20130627
  Serious: Yes (Other)
  Sender: FDA-Public Use
  Company Number: US-BAYER-2012-125626

PATIENT
  Age: 62 Year
  Sex: Female
  Weight: 63 kg

DRUGS (15)
  1. TRASYLOL [Suspect]
     Indication: CORONARY ARTERY BYPASS
     Dosage: 100 ml, ONCE
     Route: 042
     Dates: start: 19960409, end: 19960409
  2. DOPAMINE [Concomitant]
     Dosage: UNK
     Route: 042
     Dates: start: 19960409, end: 19960409
  3. FORANE [Concomitant]
     Dosage: Inhaled
     Dates: start: 19960409, end: 19960409
  4. FENTANYL [Concomitant]
     Dosage: UNK
     Route: 042
     Dates: start: 19960409, end: 19960409
  5. DIPRIVAN [Concomitant]
     Dosage: UNK
     Route: 042
     Dates: start: 19960409, end: 19960409
  6. VERSED [Concomitant]
     Dosage: UNK
     Route: 042
     Dates: start: 19960409, end: 19960409
  7. NITROGLYCERIN [Concomitant]
     Dosage: UNK
     Route: 042
     Dates: start: 19960409, end: 19960409
  8. PROTAMINE [Concomitant]
     Dosage: UNK
     Route: 042
     Dates: start: 19960409, end: 19960409
  9. PROTAMINE [Concomitant]
     Dosage: Bypass
     Dates: start: 19960409, end: 19960409
  10. HEPARIN [Concomitant]
     Dosage: Bypass
     Dates: start: 19960409, end: 19960409
  11. LACTATED RINGER^S [Concomitant]
     Dosage: Bypass
     Dates: start: 19960409, end: 19960409
  12. MANNITOL [Concomitant]
     Dosage: Bypass
     Dates: start: 19960409, end: 19960409
  13. SODIUM BICARBONATE [Concomitant]
     Dosage: Bypass
     Dates: start: 19960409, end: 19960409
  14. PACKED RED BLOOD CELLS [Concomitant]
     Dosage: UNK
     Dates: start: 19960409, end: 19960409
  15. VANCOMYCIN [Concomitant]

REACTIONS (2)
  - Renal failure acute [None]
  - Renal tubular necrosis [None]
